FAERS Safety Report 21674240 (Version 1)
Quarter: 2022Q4

REPORT INFORMATION
  Report Type: Spontaneous
  Country: US (occurrence: US)
  Receive Date: 20221202
  Receipt Date: 20221202
  Transmission Date: 20230113
  Serious: No
  Sender: FDA-Public Use
  Company Number: US-BAYER-2022P022136

PATIENT
  Age: 32 Year
  Sex: Female

DRUGS (7)
  1. MIRENA [Suspect]
     Active Substance: LEVONORGESTREL
     Dosage: 20?G/DAY
     Route: 015
     Dates: start: 202003, end: 20220321
  2. MINERALS\VITAMINS [Concomitant]
     Active Substance: MINERALS\VITAMINS
  3. EPIPEN [Concomitant]
     Active Substance: EPINEPHRINE
  4. MAGNESIUM [Concomitant]
     Active Substance: MAGNESIUM
  5. KEFLEX PEDIATRICO [Concomitant]
  6. COLACE [Concomitant]
     Active Substance: DOCUSATE SODIUM
  7. ALUMINUM HYDROXIDE\MAGNESIUM HYDROXIDE [Concomitant]
     Active Substance: ALUMINUM HYDROXIDE\MAGNESIUM HYDROXIDE

REACTIONS (7)
  - Device dislocation [None]
  - Abdominal pain lower [None]
  - Back pain [None]
  - Dyspareunia [None]
  - Medical device discomfort [None]
  - Device issue [None]
  - Decreased appetite [None]
